FAERS Safety Report 25613261 (Version 1)
Quarter: 2025Q3

REPORT INFORMATION
  Report Type: Spontaneous
  Country: US (occurrence: None)
  Receive Date: 20250727
  Receipt Date: 20250727
  Transmission Date: 20251021
  Serious: Yes (Other)
  Sender: FDA-CTU
  Company Number: None

PATIENT
  Age: 43 Year
  Sex: Female
  Weight: 74.25 kg

DRUGS (31)
  1. ENBREL [Suspect]
     Active Substance: ETANERCEPT
     Indication: Rheumatoid arthritis
     Route: 058
     Dates: start: 20250713, end: 20250720
  2. ENBREL [Suspect]
     Active Substance: ETANERCEPT
     Indication: Psoriatic arthropathy
  3. DEVICE [Concomitant]
     Active Substance: DEVICE
  4. KiMobility Ethos wheelchair [Concomitant]
  5. MONTELUKAST [Concomitant]
     Active Substance: MONTELUKAST
  6. HYDROXYZINE [Concomitant]
     Active Substance: HYDROXYZINE HYDROCHLORIDE
  7. OMALIZUMAB [Concomitant]
     Active Substance: OMALIZUMAB
  8. CITALOPRAM [Concomitant]
     Active Substance: CITALOPRAM
  9. FLUDROCORTISONE [Concomitant]
     Active Substance: FLUDROCORTISONE
  10. spironolactone; [Concomitant]
  11. METHOTREXATE [Concomitant]
     Active Substance: METHOTREXATE
  12. FOLIC ACID [Concomitant]
     Active Substance: FOLIC ACID
  13. LORAZEPAM [Concomitant]
     Active Substance: LORAZEPAM
  14. queitapine [Concomitant]
  15. hydrocodone/aceteminophen [Concomitant]
  16. CYCLOBENZAPRINE [Concomitant]
     Active Substance: CYCLOBENZAPRINE
  17. SUMATRIPTAN [Concomitant]
     Active Substance: SUMATRIPTAN
  18. ONDANSETRON HYDROCHLORIDE [Concomitant]
     Active Substance: ONDANSETRON HYDROCHLORIDE
  19. resorcinol lotion [Concomitant]
  20. EPIPEN [Concomitant]
     Active Substance: EPINEPHRINE
  21. LOW-DOSE ASPIRIN [Concomitant]
     Active Substance: ASPIRIN
  22. FAMOTIDINE [Concomitant]
     Active Substance: FAMOTIDINE
  23. cetirizibe [Concomitant]
  24. Vitassium FastChew [Concomitant]
  25. LMNT electrolyte packet [Concomitant]
  26. L-ascorbic acid [Concomitant]
  27. CHOLECALCIFEROL [Concomitant]
     Active Substance: CHOLECALCIFEROL
  28. Vitamin K2 as MK-7 [Concomitant]
  29. MAGNESIUM GLYCINATE [Concomitant]
     Active Substance: MAGNESIUM GLYCINATE
  30. VITAMIN E [Concomitant]
     Active Substance: .ALPHA.-TOCOPHEROL
  31. DIPHENHYDRAMINE [Concomitant]
     Active Substance: DIPHENHYDRAMINE

REACTIONS (10)
  - Injection site swelling [None]
  - Injection site pain [None]
  - Injection site erythema [None]
  - Rash vesicular [None]
  - Skin warm [None]
  - Joint swelling [None]
  - Malaise [None]
  - Fatigue [None]
  - Pain [None]
  - Lymph node pain [None]

NARRATIVE: CASE EVENT DATE: 20250726
